FAERS Safety Report 24532678 (Version 1)
Quarter: 2024Q4

REPORT INFORMATION
  Report Type: Report from Study
  Country: CA (occurrence: CA)
  Receive Date: 20241022
  Receipt Date: 20241022
  Transmission Date: 20250115
  Serious: Yes (Hospitalization, Other)
  Sender: BIOCON
  Company Number: CA-BIOCON BIOLOGICS LIMITED-BBL2024007702

PATIENT

DRUGS (1)
  1. HULIO [Suspect]
     Active Substance: ADALIMUMAB-FKJP
     Indication: Chronic recurrent multifocal osteomyelitis
     Dosage: 40 MILLIGRAM, Q2W (SOLUTION)
     Route: 058

REACTIONS (2)
  - Rash [Unknown]
  - Off label use [Unknown]
